FAERS Safety Report 13255107 (Version 1)
Quarter: 2017Q1

REPORT INFORMATION
  Report Type: Spontaneous
  Country: US (occurrence: US)
  Receive Date: 20170221
  Receipt Date: 20170221
  Transmission Date: 20170428
  Serious: Yes (Other)
  Sender: FDA-Public Use
  Company Number: US-ASTELLAS-2017US004080

PATIENT
  Age: 81 Year
  Sex: Male
  Weight: 45 kg

DRUGS (1)
  1. XTANDI [Suspect]
     Active Substance: ENZALUTAMIDE
     Indication: HORMONE-REFRACTORY PROSTATE CANCER
     Route: 048
     Dates: start: 20161104

REACTIONS (13)
  - Conduction disorder [Not Recovered/Not Resolved]
  - Decreased appetite [Unknown]
  - Dyspnoea [Unknown]
  - Nausea [Not Recovered/Not Resolved]
  - Nausea [Unknown]
  - Hot flush [Unknown]
  - Visual acuity reduced [Unknown]
  - Depression [Unknown]
  - Weight decreased [Unknown]
  - Confusional state [Unknown]
  - Hypotension [Unknown]
  - Seizure [Not Recovered/Not Resolved]
  - Diarrhoea [Unknown]

NARRATIVE: CASE EVENT DATE: 20161104
